FAERS Safety Report 14495764 (Version 1)
Quarter: 2018Q1

REPORT INFORMATION
  Report Type: Report from Study
  Country: US (occurrence: US)
  Receive Date: 20180207
  Receipt Date: 20180207
  Transmission Date: 20180509
  Serious: Yes (Hospitalization, Other)
  Sender: FDA-Public Use
  Company Number: US-ROCHE-2062567

PATIENT
  Age: 75 Year
  Sex: Male

DRUGS (2)
  1. ALECENSA [Suspect]
     Active Substance: ALECTINIB HYDROCHLORIDE
     Indication: LUNG NEOPLASM MALIGNANT
     Dosage: 150 MG THREE CAPSULES TWO TIMES A DAY
     Route: 048
     Dates: start: 2018
  2. ALECENSA [Suspect]
     Active Substance: ALECTINIB HYDROCHLORIDE
     Indication: NEOPLASM MALIGNANT
     Dosage: 150 MG FOUR CAPSULES THREE TIMES A DAY ;ONGOING: NO
     Route: 048
     Dates: start: 20170901, end: 20171205

REACTIONS (10)
  - Metastases to bone [Not Recovered/Not Resolved]
  - Metastases to liver [Not Recovered/Not Resolved]
  - Pulmonary oedema [Recovered/Resolved]
  - Peripheral arterial occlusive disease [Recovering/Resolving]
  - Metastases to spine [Not Recovered/Not Resolved]
  - Metastatic neoplasm [Not Recovered/Not Resolved]
  - Weight increased [Recovered/Resolved]
  - Red blood cell count decreased [Recovered/Resolved]
  - Metastases to pelvis [Not Recovered/Not Resolved]
  - Fluid retention [Not Recovered/Not Resolved]

NARRATIVE: CASE EVENT DATE: 201710
